FAERS Safety Report 16586586 (Version 1)
Quarter: 2019Q3

REPORT INFORMATION
  Report Type: Spontaneous
  Country: US (occurrence: US)
  Receive Date: 20190717
  Receipt Date: 20190717
  Transmission Date: 20191004
  Serious: Yes (Other)
  Sender: FDA-Public Use
  Company Number: US-PFIZER INC-2019299639

PATIENT
  Age: 57 Year
  Sex: Female

DRUGS (2)
  1. LYRICA [Suspect]
     Active Substance: PREGABALIN
     Indication: PAIN
  2. LYRICA [Suspect]
     Active Substance: PREGABALIN
     Indication: SARCOIDOSIS
     Dosage: UNK
     Dates: start: 201902, end: 201903

REACTIONS (3)
  - Product use in unapproved indication [Recovered/Resolved]
  - Off label use [Recovered/Resolved]
  - Deafness bilateral [Not Recovered/Not Resolved]

NARRATIVE: CASE EVENT DATE: 201902
